FAERS Safety Report 7781396-X (Version None)
Quarter: 2011Q3

REPORT INFORMATION
  Report Type: 
  Country: None (occurrence: None)
  Receive Date: 20110927
  Receipt Date: 20110916
  Transmission Date: 20111222
  Serious: Yes (Hospitalization)
  Sender: FDA-Public Use
  Company Number: US-MERCK-1108USA00027

PATIENT
  Age: 85 Year
  Sex: Male

DRUGS (5)
  1. METFORMIN [Concomitant]
     Route: 065
  2. FLOMAX [Concomitant]
     Indication: PROSTATIC DISORDER
     Route: 065
  3. FLOMAX [Concomitant]
     Indication: BLADDER DISORDER
     Route: 065
  4. JANUVIA [Suspect]
     Indication: TYPE 2 DIABETES MELLITUS
     Route: 048
     Dates: start: 20090101, end: 20110722
  5. GABAPENTIN [Concomitant]
     Indication: NEURITIS
     Route: 065

REACTIONS (18)
  - DIVERTICULUM [None]
  - MYOCARDIAL ISCHAEMIA [None]
  - WEIGHT DECREASED [None]
  - PANCREATITIS CHRONIC [None]
  - ATRIAL FIBRILLATION [None]
  - DIABETES MELLITUS INADEQUATE CONTROL [None]
  - HAEMORRHAGIC ANAEMIA [None]
  - INTESTINAL POLYP [None]
  - DECREASED APPETITE [None]
  - NAUSEA [None]
  - LEFT VENTRICULAR HYPERTROPHY [None]
  - LUNG NEOPLASM [None]
  - PERIPHERAL VASCULAR DISORDER [None]
  - OSTEOARTHRITIS [None]
  - DYSLIPIDAEMIA [None]
  - SUPRAVENTRICULAR TACHYCARDIA [None]
  - HIATUS HERNIA [None]
  - GASTROOESOPHAGEAL REFLUX DISEASE [None]
